FAERS Safety Report 9939558 (Version 1)
Quarter: 2014Q1

REPORT INFORMATION
  Report Type: Report from Study
  Country: US (occurrence: US)
  Receive Date: 20140303
  Receipt Date: 20140303
  Transmission Date: 20141002
  Serious: No
  Sender: FDA-Public Use
  Company Number: US-ABBVIE-13P-163-1033284-00

PATIENT
  Age: 51 Year
  Sex: Female

DRUGS (16)
  1. HUMIRA [Suspect]
     Indication: COLITIS ULCERATIVE
  2. CHLORD/CLID [Concomitant]
     Indication: MUSCLE SPASMS
     Dosage: 15-2.5 MG AS REQUIRED
  3. GLUCOSAMINE/CHONDROITIN [Concomitant]
     Indication: ARTHROPATHY
     Dosage: DAILY
  4. PROBIOTIC [Concomitant]
     Indication: DYSPEPSIA
  5. RED YEAST RICE [Concomitant]
     Indication: VITAMIN SUPPLEMENTATION
  6. LORAZEPAM [Concomitant]
     Indication: ANXIETY
     Dosage: 1 MG 1-2 TIMES DAILY
  7. BUPROPRION [Concomitant]
     Indication: ANTIDEPRESSANT THERAPY
     Dosage: 300 MG DAILY
  8. CANASA [Concomitant]
     Indication: COLITIS ULCERATIVE
  9. GEMFIBROZIL [Concomitant]
     Indication: BLOOD CHOLESTEROL INCREASED
  10. DIPHEN/ATROP [Concomitant]
     Indication: DIARRHOEA
  11. MULTIVITAMIN [Concomitant]
     Indication: VITAMIN SUPPLEMENTATION
     Dosage: DAILY
  12. CALCIUM [Concomitant]
     Indication: MINERAL SUPPLEMENTATION
     Dosage: DAILY
  13. VITAMIN B12 [Concomitant]
     Indication: VITAMIN SUPPLEMENTATION
     Dosage: 1000 MG, DAILY
  14. VITAMIN D [Concomitant]
     Indication: VITAMIN SUPPLEMENTATION
     Dosage: DAILY
  15. PEPCID AC [Concomitant]
     Indication: ABDOMINAL DISCOMFORT
  16. OTC [Concomitant]
     Indication: PRODUCT USED FOR UNKNOWN INDICATION

REACTIONS (2)
  - Pain [Not Recovered/Not Resolved]
  - Drug ineffective [Not Recovered/Not Resolved]
